FAERS Safety Report 7013406-1 (Version None)
Quarter: 2010Q3

REPORT INFORMATION
  Report Type: 
  Country: None (occurrence: None)
  Receive Date: 20100924
  Receipt Date: 20100915
  Transmission Date: 20110219
  Serious: Yes (Hospitalization)
  Sender: FDA-Public Use
  Company Number: FR-KINGPHARMUSA00001-K200900028

PATIENT
  Age: 80 Year
  Sex: Female

DRUGS (10)
  1. ALTACE [Suspect]
     Indication: HYPERTENSION
     Dosage: 5 MG, BID
     Route: 048
     Dates: start: 20080730
  2. FELODIPINE [Suspect]
     Indication: HYPERTENSION
     Dosage: 5 MG, BID
     Route: 048
     Dates: start: 20080730
  3. ALDACTONE [Suspect]
     Indication: HYPERTENSION
     Dosage: 50 MG, QD
     Route: 048
  4. METOPROLOL SUCCINATE [Suspect]
     Indication: HYPERTENSION
     Dosage: 95 MG, BID
     Route: 048
  5. MOXONIDINE [Suspect]
     Indication: HYPERTENSION
     Dosage: 0.4 MG, BID
     Route: 048
     Dates: start: 20080730, end: 20080825
  6. MOXONIDINE [Suspect]
     Dosage: UNK
     Route: 048
     Dates: start: 20080801
  7. DIGITOXIN [Concomitant]
     Dosage: UNK
     Dates: end: 20080826
  8. DIGITOXIN [Concomitant]
     Dosage: UNK
     Dates: start: 20080801
  9. FERROUS SULFATE [Concomitant]
     Dosage: UNK
  10. PANTOPRAZOLE SODIUM [Concomitant]
     Dosage: UNK

REACTIONS (8)
  - ASTHENIA [None]
  - BLOOD PRESSURE SYSTOLIC DECREASED [None]
  - BRADYARRHYTHMIA [None]
  - HYPERKALAEMIA [None]
  - HYPONATRAEMIA [None]
  - LISTLESS [None]
  - NAUSEA [None]
  - SYNCOPE [None]
